FAERS Safety Report 8668150 (Version 8)
Quarter: 2013Q2

REPORT INFORMATION
  Report Type: Report from Study
  Country: GB (occurrence: GB)
  Receive Date: 20120717
  Receipt Date: 20130507
  Transmission Date: 20140414
  Serious: Yes (Other)
  Sender: FDA-Public Use
  Company Number: GB-BAYER-2012-070407

PATIENT
  Age: 23 Year
  Sex: Female

DRUGS (4)
  1. BETAFERON [Suspect]
     Indication: MULTIPLE SCLEROSIS
     Dosage: UNK
     Route: 058
     Dates: start: 20120626, end: 20130320
  2. BETAFERON [Suspect]
     Indication: MULTIPLE SCLEROSIS
     Dosage: UNK
     Dates: start: 20120626
  3. BETAFERON [Suspect]
     Indication: MULTIPLE SCLEROSIS
     Dosage: UNK
     Dates: start: 20120626
  4. FLUOXETINE [Concomitant]
     Dosage: 20 MG

REACTIONS (20)
  - Weight bearing difficulty [None]
  - Injection site bruising [None]
  - Headache [None]
  - Influenza like illness [Not Recovered/Not Resolved]
  - Pain in extremity [None]
  - Musculoskeletal pain [None]
  - Neck pain [None]
  - Paraesthesia [None]
  - Injection site bruising [None]
  - Arthralgia [None]
  - Injection site erythema [Not Recovered/Not Resolved]
  - Injection site bruising [None]
  - Depressed mood [None]
  - Palpitations [None]
  - Malaise [None]
  - Dizziness [None]
  - Pain in extremity [None]
  - Injection site pain [Recovered/Resolved]
  - Injection site haemorrhage [Not Recovered/Not Resolved]
  - Injection site swelling [Not Recovered/Not Resolved]
